FAERS Safety Report 7048570-1 (Version None)
Quarter: 2010Q4

REPORT INFORMATION
  Report Type: 
  Country: None (occurrence: None)
  Receive Date: 20101008
  Receipt Date: 20100922
  Transmission Date: 20110411
  Serious: Yes (Other)
  Sender: FDA-Public Use
  Company Number: ACO_02611_2010

PATIENT
  Sex: Female
  Weight: 72.5755 kg

DRUGS (9)
  1. AMPYRA [Suspect]
     Indication: GAIT DISTURBANCE
     Dosage: (10 MG BID ORAL)
     Route: 048
     Dates: start: 20100701, end: 20100823
  2. WELLBUTRIN [Concomitant]
  3. LEXAPRO [Concomitant]
  4. COPAXONE /03175301/ [Concomitant]
  5. MULTI-VITAMINS [Concomitant]
  6. VITAMIN B6 [Concomitant]
  7. VITAMIN B-COMPLEX /00282501/ [Concomitant]
  8. VITAMIN B-12 [Concomitant]
  9. CALCIUM [Concomitant]

REACTIONS (6)
  - CONFUSIONAL STATE [None]
  - CONVULSION [None]
  - FALL [None]
  - FEELING ABNORMAL [None]
  - SKIN LACERATION [None]
  - SYNCOPE [None]
